FAERS Safety Report 9322321 (Version 3)
Quarter: 2013Q2

REPORT INFORMATION
  Report Type: Spontaneous
  Country: JP (occurrence: JP)
  Receive Date: 20130531
  Receipt Date: 20130620
  Transmission Date: 20140414
  Serious: Yes (Hospitalization)
  Sender: FDA-Public Use
  Company Number: JP-ABBOTT-13X-087-1096743-00

PATIENT
  Age: 67 Year
  Sex: Female

DRUGS (3)
  1. CLARITH [Suspect]
     Indication: HELICOBACTER INFECTION
     Route: 048
     Dates: start: 20130304, end: 20130310
  2. TAKEPRON [Suspect]
     Indication: HELICOBACTER INFECTION
     Route: 048
     Dates: start: 20130304, end: 20130310
  3. SAWACILLIN [Suspect]
     Indication: HELICOBACTER INFECTION
     Route: 048
     Dates: start: 20130304, end: 20130310

REACTIONS (1)
  - Stevens-Johnson syndrome [Recovered/Resolved]
